FAERS Safety Report 6595001-1 (Version None)
Quarter: 2010Q1

REPORT INFORMATION
  Report Type: 
  Country: None (occurrence: None)
  Receive Date: 20100218
  Receipt Date: 20100218
  Transmission Date: 20100710
  Serious: Yes (Hospitalization)
  Sender: FDA-Public Use
  Company Number: None

PATIENT
  Sex: Female
  Weight: 66.7 kg

DRUGS (6)
  1. DOXORUBICIN HCL [Suspect]
     Dosage: 107 MG
  2. CYCLOPHOSPHAMIDE [Suspect]
     Dosage: 1068 MG
  3. HYDROCHLOROTHIAZIDE [Concomitant]
  4. KEFLEX [Concomitant]
  5. LORTAB [Concomitant]
  6. NORVASC [Concomitant]

REACTIONS (6)
  - ASTHENIA [None]
  - CHROMATURIA [None]
  - HYPOPHAGIA [None]
  - JAUNDICE [None]
  - OCULAR ICTERUS [None]
  - RASH [None]
